FAERS Safety Report 10703053 (Version 3)
Quarter: 2015Q3

REPORT INFORMATION
  Report Type: Spontaneous
  Country: IT (occurrence: IT)
  Receive Date: 20150111
  Receipt Date: 20150803
  Transmission Date: 20151125
  Serious: Yes (Hospitalization)
  Sender: FDA-Public Use
  Company Number: IT-ROCHE-1518827

PATIENT
  Age: 89 Year
  Sex: Female

DRUGS (7)
  1. SINTROM [Concomitant]
     Active Substance: ACENOCOUMAROL
     Dosage: 4MG TABLETS, 20 TABLETS DIVISIBLE INTO QUARTERS
     Route: 048
  2. ROCEFIN [Suspect]
     Active Substance: CEFTRIAXONE SODIUM
     Indication: PRODUCT USED FOR UNKNOWN INDICATION
     Dosage: 1G/10ML 1 POWDER VIAL + 1 X 10ML
     Route: 042
     Dates: start: 20141220, end: 20150105
  3. CLEXANE [Concomitant]
     Active Substance: ENOXAPARIN SODIUM
     Dosage: 4000 IU AXA/0.4 ML 6 X 0.4ML PRE-FILLED SYRINGES
     Route: 058
  4. PARIET [Concomitant]
     Active Substance: RABEPRAZOLE SODIUM
     Dosage: 1 ALU/ALU BLISTER 14 X 20 MG TABLETS
     Route: 048
  5. TAVOR [Concomitant]
     Active Substance: LORAZEPAM
     Dosage: 1MG TABLET 20 TABLETS
     Route: 048
  6. DELTACORTENE [Concomitant]
     Active Substance: PREDNISONE
     Dosage: 5MG TABLET 10 TABLETS
     Route: 048
  7. RYTMONORM [Concomitant]
     Active Substance: PROPAFENONE
     Dosage: 150MG COATED TABLET 30 TABLETS
     Route: 048

REACTIONS (2)
  - Pneumonia [Recovering/Resolving]
  - Drug ineffective [Unknown]

NARRATIVE: CASE EVENT DATE: 20150105
